FAERS Safety Report 4771676-4 (Version None)
Quarter: 2005Q3

REPORT INFORMATION
  Report Type: 
  Country: None (occurrence: None)
  Receive Date: 20050916
  Receipt Date: 20050426
  Transmission Date: 20060218
  Serious: Yes (Hospitalization)
  Sender: FDA-Public Use
  Company Number: PHEH2005US07584

PATIENT
  Age: 13 Year
  Sex: Female
  Weight: 40 kg

DRUGS (11)
  1. PREVACID [Concomitant]
     Indication: GASTRITIS
     Dosage: 30 MG, QD
     Route: 048
     Dates: start: 20030701, end: 20050401
  2. PREVACID [Concomitant]
     Dosage: 30 MG, QD
     Route: 048
     Dates: start: 20050401
  3. ADDERALL 10 [Concomitant]
     Indication: ATTENTION DEFICIT/HYPERACTIVITY DISORDER
     Dosage: 40 MG, BID
     Route: 048
     Dates: start: 20010101
  4. RISPERDAL [Concomitant]
     Indication: ATTENTION DEFICIT/HYPERACTIVITY DISORDER
     Dosage: 1.5 TABLETS BID
     Route: 048
     Dates: start: 20050101
  5. ADVAIR DISKUS 100/50 [Concomitant]
  6. DEPAKOTE [Concomitant]
     Dates: start: 20030101, end: 20050701
  7. MIRALAX [Concomitant]
  8. PROPRANOLOL [Concomitant]
  9. SINGULAIR [Concomitant]
     Dosage: 10 MG, QD
     Route: 048
     Dates: start: 20030101
  10. ZELNORM [Suspect]
     Indication: CONSTIPATION
     Dosage: 6 MG, QD
     Route: 048
     Dates: start: 20050328, end: 20050412
  11. IBUPROFEN [Concomitant]
     Indication: JUVENILE ARTHRITIS
     Dosage: 400 MG, TID
     Route: 048
     Dates: start: 20050301, end: 20050401

REACTIONS (7)
  - ABDOMINAL PAIN UPPER [None]
  - DIARRHOEA [None]
  - ILEUS [None]
  - LIPASE INCREASED [None]
  - NAUSEA [None]
  - PANCREATITIS [None]
  - VOMITING [None]
